FAERS Safety Report 6364847-7 (Version None)
Quarter: 2009Q3

REPORT INFORMATION
  Report Type: 
  Country: None (occurrence: None)
  Receive Date: 20090919
  Receipt Date: 20090729
  Transmission Date: 20100115
  Serious: No
  Sender: FDA-Public Use
  Company Number: US-ABBOTT-09P-163-0588726-00

PATIENT
  Sex: Female

DRUGS (12)
  1. HUMIRA [Suspect]
     Indication: RHEUMATOID ARTHRITIS
     Route: 058
     Dates: start: 20090401
  2. BONIVA [Concomitant]
     Indication: DRUG USE FOR UNKNOWN INDICATION
  3. PROTONIX [Concomitant]
     Indication: DRUG USE FOR UNKNOWN INDICATION
  4. ZETIA [Concomitant]
     Indication: DRUG USE FOR UNKNOWN INDICATION
  5. FEXOFENADINE [Concomitant]
     Indication: HYPERSENSITIVITY
  6. MORPHINE [Concomitant]
     Indication: DRUG USE FOR UNKNOWN INDICATION
  7. PERCOCET [Concomitant]
     Indication: DRUG USE FOR UNKNOWN INDICATION
  8. PROMETHAZINE [Concomitant]
     Indication: VOMITING
  9. METHOTREXATE [Concomitant]
     Indication: DRUG USE FOR UNKNOWN INDICATION
  10. METHOTREXATE [Concomitant]
     Route: 048
  11. NASACOR [Concomitant]
     Indication: DRUG USE FOR UNKNOWN INDICATION
     Route: 045
  12. FOLIC ACID [Concomitant]
     Indication: DRUG USE FOR UNKNOWN INDICATION

REACTIONS (10)
  - BACK INJURY [None]
  - DRUG DOSE OMISSION [None]
  - FALL [None]
  - HEAD INJURY [None]
  - HEADACHE [None]
  - LIMB CRUSHING INJURY [None]
  - MUSCULOSKELETAL STIFFNESS [None]
  - RASH [None]
  - SKIN LACERATION [None]
  - WOUND HAEMORRHAGE [None]
